FAERS Safety Report 6695923-7 (Version None)
Quarter: 2010Q2

REPORT INFORMATION
  Report Type: 
  Country: None (occurrence: None)
  Receive Date: 20100422
  Receipt Date: 20100422
  Transmission Date: 20101027
  Serious: Yes (Hospitalization)
  Sender: FDA-Public Use
  Company Number: None

PATIENT
  Age: 65 Year
  Sex: Male
  Weight: 83.9154 kg

DRUGS (6)
  1. CETUXIMAB [Suspect]
     Indication: BLADDER CANCER
     Dosage: CETUXIMAB 250 MG/M2 WEEKLY INTRAVENOUS
     Route: 042
     Dates: start: 20091223, end: 20100407
  2. PACLITAXEL [Suspect]
     Indication: BLADDER CANCER
     Dosage: PACLITAXEL 80 MG/M2 WEEKLY INTRAVENOUS
     Route: 042
     Dates: start: 20091223, end: 20100407
  3. OXYCODONE HCL AND ACETAMINOPHEN [Concomitant]
  4. RESTORIL [Concomitant]
  5. OXYCONTIN [Concomitant]
  6. SENOKOT [Concomitant]

REACTIONS (4)
  - BACK PAIN [None]
  - BONE NEOPLASM [None]
  - LUMBAR VERTEBRAL FRACTURE [None]
  - NEOPLASM PROGRESSION [None]
